FAERS Safety Report 7647094-8 (Version None)
Quarter: 2011Q3

REPORT INFORMATION
  Report Type: 
  Country: None (occurrence: None)
  Receive Date: 20110801
  Receipt Date: 20110726
  Transmission Date: 20111222
  Serious: Yes (Congenital Anomaly)
  Sender: FDA-Public Use
  Company Number: US-ABBOTT-11P-163-0841512-00

PATIENT

DRUGS (3)
  1. REYATAZ [Suspect]
     Indication: MATERNAL EXPOSURE DURING PREGNANCY
  2. NORVIR [Suspect]
     Indication: MATERNAL EXPOSURE DURING PREGNANCY
     Route: 064
  3. TRUVADA [Suspect]
     Indication: MATERNAL EXPOSURE DURING PREGNANCY
     Route: 064

REACTIONS (2)
  - GASTROINTESTINAL DISORDER [None]
  - MATERNAL EXPOSURE DURING PREGNANCY [None]
